FAERS Safety Report 6887105-0 (Version None)
Quarter: 2010Q3

REPORT INFORMATION
  Report Type: 
  Country: None (occurrence: None)
  Receive Date: 20100730
  Receipt Date: 20100721
  Transmission Date: 20110219
  Serious: Yes (Other)
  Sender: FDA-Public Use
  Company Number: BR-JNJFOC-20100707701

PATIENT
  Age: 52 Year
  Sex: Male
  Weight: 89 kg

DRUGS (2)
  1. IMOSEC [Suspect]
     Route: 065
  2. IMOSEC [Suspect]
     Indication: DIARRHOEA
     Dosage: 2MG/TABLET, 2 TABLETS ONCE IN A WEEK, TOTAL DOSE 4MG/WEEK
     Route: 065

REACTIONS (1)
  - FAECES DISCOLOURED [None]
